FAERS Safety Report 23746590 (Version 1)
Quarter: 2024Q2

REPORT INFORMATION
  Report Type: Spontaneous
  Country: FR (occurrence: FR)
  Receive Date: 20240416
  Receipt Date: 20240416
  Transmission Date: 20240715
  Serious: Yes (Other)
  Sender: FDA-Public Use
  Company Number: FR-CELLTRION INC.-2024FR008868

PATIENT

DRUGS (1)
  1. INFLIXIMAB [Suspect]
     Active Substance: INFLIXIMAB
     Indication: Ankylosing spondylitis
     Dosage: 10 MG/KG/1 CYCLIQUE
     Route: 042
     Dates: start: 2018, end: 20210304

REACTIONS (1)
  - Polychondritis [Recovered/Resolved]

NARRATIVE: CASE EVENT DATE: 20210217
